FAERS Safety Report 7415074-3 (Version None)
Quarter: 2011Q2

REPORT INFORMATION
  Report Type: 
  Country: None (occurrence: None)
  Receive Date: 20110414
  Receipt Date: 20110405
  Transmission Date: 20111010
  Serious: Yes (Other)
  Sender: FDA-Public Use
  Company Number: DE-ASTRAZENECA-2011SE19562

PATIENT
  Sex: Male

DRUGS (1)
  1. BRILIQUE [Suspect]
     Route: 048

REACTIONS (1)
  - ATRIOVENTRICULAR BLOCK [None]
